FAERS Safety Report 16980320 (Version 1)
Quarter: 2019Q4

REPORT INFORMATION
  Report Type: Spontaneous
  Country: US (occurrence: US)
  Receive Date: 20191031
  Receipt Date: 20191031
  Transmission Date: 20200122
  Serious: Yes (Other)
  Sender: FDA-Public Use
  Company Number: US-PFIZER INC-2019467559

PATIENT
  Age: 22 Year
  Sex: Female

DRUGS (2)
  1. SERTRALINE HCL [Suspect]
     Active Substance: SERTRALINE HYDROCHLORIDE
     Dosage: 25 MG, UNK
     Dates: end: 201910
  2. SERTRALINE HCL [Suspect]
     Active Substance: SERTRALINE HYDROCHLORIDE
     Indication: ANXIETY DISORDER
     Dosage: 12.5 MG, UNK
     Route: 048
     Dates: start: 201910

REACTIONS (2)
  - Oropharyngeal pain [Unknown]
  - Mouth ulceration [Unknown]

NARRATIVE: CASE EVENT DATE: 201910
